FAERS Safety Report 8943408 (Version 2)
Quarter: 2013Q2

REPORT INFORMATION
  Report Type: Spontaneous
  Country: US (occurrence: US)
  Receive Date: 20121203
  Receipt Date: 20130611
  Transmission Date: 20140414
  Serious: Yes (Other)
  Sender: FDA-Public Use
  Company Number: US-NOVOPROD-361259

PATIENT
  Age: 36 Year
  Sex: Female
  Weight: 53.06 kg

DRUGS (3)
  1. NOVOLIN N [Suspect]
     Indication: GESTATIONAL DIABETES
     Dosage: 24 U AM, 4 U HS
     Route: 058
     Dates: start: 20120425, end: 20120613
  2. NOVOLOG [Suspect]
     Indication: GESTATIONAL DIABETES
     Dosage: UP TO 16 U AM, 8 U W LUNCH + 8 U W DINNER
     Route: 058
     Dates: start: 20120527, end: 20120613
  3. NOVOLOG [Suspect]
     Dosage: ABOUT 20 UNITS DAILY
     Route: 058
     Dates: start: 20120615

REACTIONS (3)
  - Pre-eclampsia [Unknown]
  - Premature delivery [Recovered/Resolved]
  - Exposure during pregnancy [Recovered/Resolved]
